FAERS Safety Report 4528756-8 (Version None)
Quarter: 2004Q4

REPORT INFORMATION
  Report Type: 
  Country: None (occurrence: None)
  Receive Date: 20041214
  Receipt Date: 20041201
  Transmission Date: 20050328
  Serious: Yes (Other)
  Sender: FDA-Public Use
  Company Number: 2004093693

PATIENT
  Age: 39 Year
  Sex: Female

DRUGS (4)
  1. DOSTINEX [Suspect]
     Indication: HYPERPROLACTINAEMIA
     Dosage: (0.25 MG, TWICE ORAL
     Route: 048
     Dates: start: 20000601, end: 20000617
  2. CLOBAZAM (CLOBAZAM) [Concomitant]
  3. NOMEGESTROL (NOMEGESTROL) [Concomitant]
  4. CLOMIPRAMINE HCL [Concomitant]

REACTIONS (1)
  - HYPERTONIC BLADDER [None]
